FAERS Safety Report 9613282 (Version 3)
Quarter: 2013Q4

REPORT INFORMATION
  Report Type: Report from Study
  Country: AU (occurrence: AU)
  Receive Date: 20131010
  Receipt Date: 20131231
  Transmission Date: 20140711
  Serious: Yes (Hospitalization)
  Sender: FDA-Public Use
  Company Number: AU-ASTRAZENECA-2013SE74361

PATIENT
  Age: 21038 Day
  Sex: Male

DRUGS (22)
  1. AZD6140 [Suspect]
     Indication: CORONARY ARTERY DISEASE
     Route: 048
     Dates: start: 20120214, end: 20120724
  2. AZD6140 [Suspect]
     Indication: CORONARY ARTERY DISEASE
     Dosage: MODIFIED STUDY TREATMENT
     Route: 048
     Dates: start: 20120919, end: 20130930
  3. AZD6140 [Suspect]
     Indication: CORONARY ARTERY DISEASE
     Dosage: MODIFIED STUDY TREATMENT
     Route: 048
     Dates: start: 20131025
  4. PLACEBO [Suspect]
     Indication: ARTERIAL STENT INSERTION
     Route: 048
     Dates: start: 20120919, end: 20130930
  5. PLACEBO [Suspect]
     Indication: ARTERIAL STENT INSERTION
     Route: 048
     Dates: start: 20131025
  6. ZOCOR [Concomitant]
     Indication: HYPERLIPIDAEMIA
     Route: 048
  7. NORVASC [Concomitant]
     Indication: HYPERTENSION
     Route: 048
  8. PANTOPRAZOLE [Concomitant]
     Indication: GASTROOESOPHAGEAL REFLUX DISEASE
     Route: 048
     Dates: start: 20121007
  9. PREDNISALONE [Concomitant]
     Indication: SARCOIDOSIS
     Route: 048
  10. AMLODOPINE [Concomitant]
     Indication: HYPERTENSION
     Route: 048
     Dates: start: 20120914
  11. ATENOLOL [Concomitant]
     Indication: HYPERTENSION
     Route: 048
     Dates: start: 20120914
  12. ATACAND [Concomitant]
     Indication: HYPERTENSION
     Route: 048
  13. ASA [Concomitant]
     Route: 048
  14. SOMAC [Concomitant]
     Indication: GASTRIC DISORDER
     Route: 048
  15. GTN SPRAY [Concomitant]
     Indication: CHEST PAIN
     Route: 060
     Dates: start: 20130924, end: 20130924
  16. MIDAZOLAM [Concomitant]
     Indication: PERCUTANEOUS CORONARY INTERVENTION
     Route: 042
     Dates: start: 20130924, end: 20130924
  17. FLUCLOXACILLIN [Concomitant]
     Route: 042
     Dates: start: 20130928, end: 20131002
  18. PARACETAMOL [Concomitant]
     Indication: PAIN
     Route: 048
     Dates: start: 20130923, end: 20130926
  19. PARACETAMOL [Concomitant]
     Indication: PAIN
     Route: 048
     Dates: start: 20130928, end: 20130929
  20. FENTANYL [Concomitant]
     Indication: PERCUTANEOUS CORONARY INTERVENTION
     Route: 042
     Dates: start: 20130924, end: 20130925
  21. COLOXYL [Concomitant]
     Indication: FUNCTIONAL GASTROINTESTINAL DISORDER
     Route: 048
     Dates: start: 20130926, end: 20130926
  22. MYLANTA [Concomitant]
     Indication: DYSPEPSIA
     Route: 048
     Dates: start: 20130924, end: 20130924

REACTIONS (1)
  - Haematoma infection [Recovered/Resolved]
